FAERS Safety Report 25646032 (Version 1)
Quarter: 2025Q3

REPORT INFORMATION
  Report Type: Spontaneous
  Country: CN (occurrence: CN)
  Receive Date: 20250805
  Receipt Date: 20250805
  Transmission Date: 20251021
  Serious: Yes (Hospitalization, Disabling, Other)
  Sender: BRISTOL-MYERS SQUIBB COMPANY
  Company Number: CN-BRISTOL-MYERS SQUIBB COMPANY-2025-107483

PATIENT
  Age: 43 Year
  Sex: Male

DRUGS (2)
  1. YERVOY [Suspect]
     Active Substance: IPILIMUMAB
     Indication: Hepatocellular carcinoma
     Route: 041
     Dates: start: 20250523, end: 20250613
  2. OPDIVO [Suspect]
     Active Substance: NIVOLUMAB
     Indication: Hepatocellular carcinoma
     Route: 041
     Dates: start: 20250523, end: 20250613

REACTIONS (3)
  - Proteinuria [Unknown]
  - Off label use [Unknown]
  - Transaminases increased [Unknown]

NARRATIVE: CASE EVENT DATE: 20250716
